FAERS Safety Report 10704263 (Version 1)
Quarter: 2014Q4

REPORT INFORMATION
  Report Type: Report from Study
  Country: US (occurrence: None)
  Receive Date: 20141224
  Receipt Date: 20141224
  Transmission Date: 20150529
  Serious: No
  Sender: FDA-Public Use
  Company Number: CABO-14004961

PATIENT
  Age: 25 Year
  Sex: Male
  Weight: 64.3 kg

DRUGS (2)
  1. PANTOPRAZOLE (PANTOPRAZOLE) [Concomitant]
     Active Substance: PANTOPRAZOLE SODIUM
  2. COMETRIQ [Suspect]
     Active Substance: CABOZANTINIB S-MALATE
     Indication: RENAL CANCER
     Route: 048
     Dates: start: 20141105

REACTIONS (5)
  - Gastrooesophageal reflux disease [None]
  - Anxiety [None]
  - Nausea [None]
  - Vomiting [None]
  - Off label use [None]
